FAERS Safety Report 8802855 (Version 2)
Quarter: 2012Q4

REPORT INFORMATION
  Report Type: 
  Country: US (occurrence: US)
  Receive Date: 20120921
  Receipt Date: 20120928
  Transmission Date: 20130627
  Serious: Yes (Hospitalization)
  Sender: FDA-Public Use
  Company Number: US-009507513-1209USA005434

PATIENT

DRUGS (1)
  1. TEMODAR [Suspect]

REACTIONS (3)
  - Oesophagitis [Recovered/Resolved]
  - Angioedema [Recovered/Resolved]
  - Wrong technique in drug usage process [Unknown]
